FAERS Safety Report 8818976 (Version 1)
Quarter: 2012Q4

REPORT INFORMATION
  Report Type: 
  Country: KR (occurrence: KR)
  Receive Date: 20121001
  Receipt Date: 20121001
  Transmission Date: 20130627
  Serious: Yes (Other)
  Sender: FDA-Public Use
  Company Number: PHHY2012KR083297

PATIENT
  Sex: Female

DRUGS (1)
  1. SANDOSTATIN LAR [Suspect]
     Indication: ACROMEGALY
     Dosage: UNK UKN, UNK
     Route: 030
     Dates: start: 20070905

REACTIONS (2)
  - Thyroid neoplasm [Unknown]
  - Large intestine polyp [Unknown]
